FAERS Safety Report 17988688 (Version 1)
Quarter: 2020Q3

REPORT INFORMATION
  Report Type: Spontaneous
  Country: CO (occurrence: CO)
  Receive Date: 20200707
  Receipt Date: 20200707
  Transmission Date: 20201103
  Serious: Yes (Other)
  Sender: FDA-Public Use
  Company Number: CO-009507513-2007COL000801

PATIENT
  Age: 35 Year
  Sex: Female

DRUGS (1)
  1. IMPLANON NXT [Suspect]
     Active Substance: ETONOGESTREL
     Dosage: 1 IMPLANT
     Route: 030
     Dates: start: 202004

REACTIONS (4)
  - Device placement issue [Unknown]
  - Breast abscess [Unknown]
  - Amenorrhoea [Unknown]
  - Device issue [Unknown]

NARRATIVE: CASE EVENT DATE: 2020
